FAERS Safety Report 15129753 (Version 1)
Quarter: 2018Q3

REPORT INFORMATION
  Report Type: Spontaneous
  Country: US (occurrence: US)
  Receive Date: 20180711
  Receipt Date: 20180711
  Transmission Date: 20181010
  Serious: No
  Sender: FDA-Public Use
  Company Number: US-SA-2018SA179856

PATIENT
  Sex: Male

DRUGS (2)
  1. AUBAGIO [Suspect]
     Active Substance: TERIFLUNOMIDE
     Indication: MULTIPLE SCLEROSIS
  2. IMIPRAMINE [Suspect]
     Active Substance: IMIPRAMINE

REACTIONS (3)
  - Panic attack [Recovering/Resolving]
  - Drug interaction [Unknown]
  - Euphoric mood [Not Recovered/Not Resolved]
